FAERS Safety Report 6249234-4 (Version None)
Quarter: 2009Q2

REPORT INFORMATION
  Report Type: 
  Country: None (occurrence: None)
  Receive Date: 20090624
  Receipt Date: 20090624
  Transmission Date: 20091009
  Serious: No
  Sender: FDA-Public Use
  Company Number: None

PATIENT
  Age: 64 Year
  Sex: Female
  Weight: 66.6788 kg

DRUGS (1)
  1. ZEMAIRA [Suspect]
     Dosage: 60 MG/KG 1 SHOT PER WEEK IV DRIP
     Route: 041
     Dates: start: 20090528, end: 20090609

REACTIONS (4)
  - ABDOMINAL DISTENSION [None]
  - ABDOMINAL PAIN UPPER [None]
  - BLOOD PRESSURE FLUCTUATION [None]
  - HEADACHE [None]
